FAERS Safety Report 15900997 (Version 2)
Quarter: 2019Q2

REPORT INFORMATION
  Report Type: Spontaneous
  Country: FR (occurrence: FR)
  Receive Date: 20190201
  Receipt Date: 20190515
  Transmission Date: 20190711
  Serious: Yes (Hospitalization, Other)
  Sender: FDA-Public Use
  Company Number: FR-009507513-1901FRA009320

PATIENT
  Age: 85 Year
  Sex: Male

DRUGS (6)
  1. LIPTRUZET [Suspect]
     Active Substance: ATORVASTATIN CALCIUM\EZETIMIBE
     Indication: LOW DENSITY LIPOPROTEIN DECREASED
     Dosage: STRENGTH: 10/40 (UNITS UNSPECIFIED), 1 TABLET PER DAY, QPM (IN THE EVENING)
     Route: 048
     Dates: start: 20180913, end: 20181231
  2. PLAVIX [Concomitant]
     Active Substance: CLOPIDOGREL BISULFATE
     Indication: CEREBROVASCULAR ACCIDENT
     Dosage: STRENGTH: 75 (UNIT UNSPECIFIED), QD (1 TABLET PER DAY)
     Route: 048
  3. TEMERIT [Concomitant]
     Active Substance: NEBIVOLOL
     Indication: HYPERTENSION
     Dosage: 5 MILLIGRAM, 1 TABLET PER DAY
     Route: 048
  4. LIPTRUZET [Suspect]
     Active Substance: ATORVASTATIN CALCIUM\EZETIMIBE
     Indication: HYPERCHOLESTEROLAEMIA
  5. PANTOPRAZOLE [Concomitant]
     Active Substance: PANTOPRAZOLE
     Indication: ABDOMINAL PAIN UPPER
     Dosage: 1 DOSAGE FORM, QD, (1 TABLET PER DAY)
     Route: 048
  6. COTAREG [Concomitant]
     Active Substance: HYDROCHLOROTHIAZIDE\VALSARTAN
     Indication: HYPERTENSION
     Dosage: STRENGTH: 160/12.5 (UNSPECIFIED UNITS), 1 TABLET PER DAY
     Route: 048

REACTIONS (3)
  - Hepatocellular injury [Recovering/Resolving]
  - Pruritus generalised [Recovered/Resolved]
  - Jaundice cholestatic [Recovering/Resolving]

NARRATIVE: CASE EVENT DATE: 20181120
